FAERS Safety Report 20533735 (Version 4)
Quarter: 2022Q4

REPORT INFORMATION
  Report Type: Spontaneous
  Country: US (occurrence: US)
  Receive Date: 20220301
  Receipt Date: 20221005
  Transmission Date: 20230113
  Serious: No
  Sender: FDA-Public Use
  Company Number: US-PFIZER INC-2021556619

PATIENT
  Age: 43 Year
  Sex: Female

DRUGS (4)
  1. XELJANZ XR [Suspect]
     Active Substance: TOFACITINIB CITRATE
     Dosage: 22 MG
     Dates: start: 20210413
  2. XELJANZ XR [Suspect]
     Active Substance: TOFACITINIB CITRATE
     Dosage: 22 MG
     Dates: start: 20210430
  3. XELJANZ XR [Suspect]
     Active Substance: TOFACITINIB CITRATE
     Dosage: 11 MG, DAILY ALTERNATING WITH 22MG
  4. XELJANZ XR [Suspect]
     Active Substance: TOFACITINIB CITRATE
     Dosage: 22 MG
     Dates: start: 2022

REACTIONS (5)
  - Drug ineffective [Unknown]
  - Off label use [Unknown]
  - Product dose omission issue [Unknown]
  - Memory impairment [Unknown]
  - Pollakiuria [Recovered/Resolved]

NARRATIVE: CASE EVENT DATE: 20210101
